FAERS Safety Report 14074333 (Version 9)
Quarter: 2018Q2

REPORT INFORMATION
  Report Type: Spontaneous
  Country: DE (occurrence: DE)
  Receive Date: 20171011
  Receipt Date: 20180626
  Transmission Date: 20180711
  Serious: Yes (Other)
  Sender: FDA-Public Use
  Company Number: DE-GLAXOSMITHKLINE-DE2017GSK155210

PATIENT
  Age: 58 Year
  Sex: Male
  Weight: 85 kg

DRUGS (4)
  1. RALTEGRAVIR. [Interacting]
     Active Substance: RALTEGRAVIR
     Indication: HIV INFECTION
     Dosage: 400 MG, BID, 2 SEPERATED DOSES DAILY DOSE: 1000 MG MILLGRAM(S)
     Route: 048
     Dates: start: 200602, end: 200602
  2. RITONAVIR. [Interacting]
     Active Substance: RITONAVIR
     Indication: HIV INFECTION
     Dosage: 50 MG, Z, 2 SEPERATED DOSES DAILY DOSE: 1000 MG MILLGRAM(S) EVERY DAYS (50 MG,2 IN 2D)
     Route: 048
     Dates: start: 200602
  3. CEFUROXIME AXETIL. [Suspect]
     Active Substance: CEFUROXIME AXETIL
     Indication: ABSCESS
     Dosage: 500 MG, BID, 2 SEPERATED DOSES DAILY DOSE: 1000 MG
     Route: 048
     Dates: start: 201706, end: 20170904
  4. LOPINAVIR [Interacting]
     Active Substance: LOPINAVIR
     Indication: HIV INFECTION
     Dosage: 200 MG, BID, EVERY 2 DAYS 2 SEPERATED DOSES DAILY DOSE: 1000 MG MILLGRAM(S)
     Route: 048
     Dates: start: 200602

REACTIONS (3)
  - Drug interaction [Unknown]
  - Drug effect decreased [Unknown]
  - Blood HIV RNA increased [Unknown]

NARRATIVE: CASE EVENT DATE: 20170809
